FAERS Safety Report 8994799 (Version 1)
Quarter: 2012Q4

REPORT INFORMATION
  Report Type: Spontaneous
  Country: US (occurrence: None)
  Receive Date: 20121221
  Receipt Date: 20121221
  Transmission Date: 20130627
  Serious: Yes (Disabling)
  Sender: FDA-Public Use
  Company Number: COL_12835_2012

PATIENT
  Age: 17 Year
  Sex: Male

DRUGS (2)
  1. COLGATE TOTAL WHITENING [Suspect]
     Indication: DENTAL CARIES
     Route: 048
     Dates: start: 201211
  2. COLGATE TOTAL WHITENING [Suspect]
     Indication: DENTAL PLAQUE
     Route: 048
     Dates: start: 201211

REACTIONS (2)
  - Tooth loss [None]
  - Tooth discolouration [None]
